FAERS Safety Report 6692604-0 (Version None)
Quarter: 2010Q2

REPORT INFORMATION
  Report Type: 
  Country: None (occurrence: None)
  Receive Date: 20100422
  Receipt Date: 20100412
  Transmission Date: 20101027
  Serious: Yes (Hospitalization)
  Sender: FDA-Public Use
  Company Number: IT-PFIZER INC-2010022499

PATIENT
  Age: 64 Year
  Sex: Female

DRUGS (6)
  1. ADRIBLASTINA [Suspect]
     Indication: NON-HODGKIN'S LYMPHOMA
     Dosage: 80 MG, CYCLIC
     Route: 042
     Dates: start: 20091217, end: 20100126
  2. VINCRISTINE [Suspect]
     Indication: NON-HODGKIN'S LYMPHOMA
     Dosage: 2 MG, CYCLIC
     Route: 042
     Dates: start: 20091017, end: 20100126
  3. CYCLOPHOSPHAMIDE [Suspect]
     Indication: NON-HODGKIN'S LYMPHOMA
     Dosage: 1300 MG, CYCLIC
     Route: 042
     Dates: start: 20091217, end: 20100126
  4. MABTHERA [Concomitant]
  5. ESOMEPRAZOLE MAGNESIUM [Concomitant]
  6. PREDNISONE [Concomitant]

REACTIONS (2)
  - HYPOXIA [None]
  - INTERSTITIAL LUNG DISEASE [None]
